FAERS Safety Report 5308556-1 (Version None)
Quarter: 2007Q2

REPORT INFORMATION
  Report Type: 
  Country: None (occurrence: None)
  Receive Date: 20070423
  Receipt Date: 20070423
  Transmission Date: 20071010
  Serious: Yes (Death)
  Sender: FDA-Public Use
  Company Number: None

PATIENT
  Age: 31 Year
  Sex: Male
  Weight: 99.7913 kg

DRUGS (1)
  1. OXYCONTIN [Suspect]
     Indication: BACK PAIN
     Dosage: 80MG AS NEEDED PO
     Route: 048

REACTIONS (3)
  - ACCIDENTAL OVERDOSE [None]
  - SELF-MEDICATION [None]
  - VOMITING [None]
